FAERS Safety Report 9300808 (Version 1)
Quarter: 2013Q2

REPORT INFORMATION
  Report Type: Spontaneous
  Country: US (occurrence: US)
  Receive Date: 20130521
  Receipt Date: 20130521
  Transmission Date: 20140414
  Serious: Yes (Hospitalization)
  Sender: FDA-Public Use
  Company Number: CHPA2013US008384

PATIENT
  Age: 56 Year
  Sex: Female

DRUGS (6)
  1. CONTROL PLP [Suspect]
     Indication: SMOKING CESSATION THERAPY
     Dosage: 21 MG, ONCE/SINGLE
     Route: 062
     Dates: start: 20130514, end: 20130514
  2. CONTROL PLP [Suspect]
     Dosage: 21 MG, QD
     Route: 062
  3. CLONAZEPAM [Concomitant]
     Indication: BIPOLAR DISORDER
     Dosage: UNK
  4. CLONAZEPAM [Concomitant]
     Indication: ANXIETY
  5. CLONAZEPAM [Concomitant]
     Indication: PANIC ATTACK
  6. SEROQUEL [Concomitant]
     Indication: BIPOLAR DISORDER
     Dosage: UNK

REACTIONS (3)
  - Chronic obstructive pulmonary disease [Not Recovered/Not Resolved]
  - Overdose [Unknown]
  - Treatment noncompliance [Unknown]
